FAERS Safety Report 4543209-9 (Version None)
Quarter: 2005Q1

REPORT INFORMATION
  Report Type: 
  Country: None (occurrence: None)
  Receive Date: 20050103
  Receipt Date: 20020911
  Transmission Date: 20050727
  Serious: Yes (Other)
  Sender: FDA-Public Use
  Company Number: 200218054GDDC

PATIENT
  Age: 46 Year
  Sex: 0

DRUGS (5)
  1. RIFAMPICIN [Suspect]
     Indication: TUBERCULOSIS
  2. ISONIAZID [Suspect]
     Indication: TUBERCULOSIS
  3. PYRAZINAMIDE [Suspect]
     Indication: TUBERCULOSIS
  4. ETHAMBUTOL [Suspect]
     Indication: TUBERCULOSIS
  5. PYRIDOXINE HCL [Concomitant]

REACTIONS (6)
  - DIZZINESS [None]
  - HALLUCINATION [None]
  - NAUSEA [None]
  - NEUROPATHY PERIPHERAL [None]
  - NIGHTMARE [None]
  - VOMITING [None]
